FAERS Safety Report 7901631-4 (Version None)
Quarter: 2011Q4

REPORT INFORMATION
  Report Type: 
  Country: None (occurrence: None)
  Receive Date: 20111108
  Receipt Date: 20111104
  Transmission Date: 20120403
  Serious: Yes (Life-Threatening)
  Sender: FDA-Public Use
  Company Number: FR-ROCHE-1009779

PATIENT
  Sex: Female

DRUGS (5)
  1. LEUCOVORIN CALCIUM [Concomitant]
     Route: 042
     Dates: start: 20110707
  2. AVASTIN [Suspect]
     Indication: COLON CANCER
     Route: 042
     Dates: start: 20110707, end: 20110707
  3. ELOXATIN [Concomitant]
     Indication: COLON CANCER
     Route: 042
     Dates: start: 20110707
  4. FLUOROURACIL [Concomitant]
     Indication: COLON CANCER
     Route: 042
     Dates: start: 20110707
  5. FLUOROURACIL [Concomitant]
     Dates: start: 20110707

REACTIONS (2)
  - CARDIOGENIC SHOCK [None]
  - PULMONARY EMBOLISM [None]
